FAERS Safety Report 6566009-7 (Version None)
Quarter: 2010Q1

REPORT INFORMATION
  Report Type: 
  Country: None (occurrence: None)
  Receive Date: 20100129
  Receipt Date: 20100129
  Transmission Date: 20100710
  Serious: Yes (Hospitalization)
  Sender: FDA-Public Use
  Company Number: None

PATIENT
  Sex: Male
  Weight: 77.1115 kg

DRUGS (3)
  1. LEVETIRACETAM [Suspect]
     Indication: EPILEPSY
     Dosage: 250 MG BID PO 1 MONTH, STILL TAKING
     Route: 048
  2. INSULIN [Concomitant]
  3. VITAMIN D [Concomitant]

REACTIONS (3)
  - ASPHYXIA [None]
  - OVERDOSE [None]
  - SUICIDE ATTEMPT [None]
